FAERS Safety Report 6120329-9 (Version None)
Quarter: 2009Q1

REPORT INFORMATION
  Report Type: 
  Country: None (occurrence: None)
  Receive Date: 20090312
  Receipt Date: 20090312
  Transmission Date: 20090719
  Serious: Yes (Other)
  Sender: FDA-Public Use
  Company Number: None

PATIENT
  Sex: Female
  Weight: 83.9154 kg

DRUGS (2)
  1. PROZAC [Suspect]
     Indication: MAJOR DEPRESSION
     Dosage: 20 MG DAILY PO 047
     Route: 048
     Dates: start: 20011226
  2. PROZAC [Suspect]
     Indication: PSYCHOTIC DISORDER
     Dosage: 20 MG DAILY PO 047
     Route: 048
     Dates: start: 20011226

REACTIONS (3)
  - PRODUCT QUALITY ISSUE [None]
  - PRURITUS [None]
  - RASH GENERALISED [None]
